FAERS Safety Report 21570205 (Version 7)
Quarter: 2025Q4

REPORT INFORMATION
  Report Type: Report from Study
  Country: US (occurrence: US)
  Receive Date: 20221109
  Receipt Date: 20251202
  Transmission Date: 20260117
  Serious: Yes (Other)
  Sender: ROCHE
  Company Number: US-ROCHE-2769941

PATIENT
  Age: 79 Year
  Sex: Female

DRUGS (2)
  1. CELLCEPT [Suspect]
     Active Substance: MYCOPHENOLATE MOFETIL
     Indication: Interstitial lung disease
     Route: 048
  2. CELLCEPT [Suspect]
     Active Substance: MYCOPHENOLATE MOFETIL
     Route: 065

REACTIONS (7)
  - Circumstance or information capable of leading to medication error [Unknown]
  - Off label use [Unknown]
  - Pain [Unknown]
  - Arthropathy [Unknown]
  - Illness [Unknown]
  - Neuropathy peripheral [Unknown]
  - Dyspnoea [Unknown]
